FAERS Safety Report 4295002-2 (Version None)
Quarter: 2004Q1

REPORT INFORMATION
  Report Type: 
  Country: None (occurrence: None)
  Receive Date: 20040216
  Receipt Date: 20040203
  Transmission Date: 20041129
  Serious: Yes (Hospitalization)
  Sender: FDA-Public Use
  Company Number: 200410247JP

PATIENT
  Age: 81 Year
  Sex: Female

DRUGS (1)
  1. LASIX [Suspect]
     Indication: OEDEMA
     Route: 048

REACTIONS (8)
  - ABASIA [None]
  - APHASIA [None]
  - BLOOD UREA INCREASED [None]
  - DEHYDRATION [None]
  - HYPERNATRAEMIA [None]
  - MARKEDLY REDUCED DIETARY INTAKE [None]
  - SOMNOLENCE [None]
  - URINARY TRACT INFECTION [None]
